FAERS Safety Report 7108441-9 (Version None)
Quarter: 2010Q4

REPORT INFORMATION
  Report Type: 
  Country: None (occurrence: None)
  Receive Date: 20101117
  Receipt Date: 20101106
  Transmission Date: 20110411
  Serious: Yes (Death)
  Sender: FDA-Public Use
  Company Number: B0680512A

PATIENT
  Age: 46 Year
  Sex: Male
  Weight: 80.5 kg

DRUGS (9)
  1. MARAVIROC [Suspect]
     Indication: HIV INFECTION
     Dosage: 300MG PER DAY
     Route: 048
     Dates: start: 20060316, end: 20060612
  2. SELZENTRY [Concomitant]
     Indication: HIV INFECTION
     Route: 048
     Dates: start: 20100204, end: 20100916
  3. INTELENCE [Concomitant]
     Route: 048
     Dates: start: 20100204, end: 20100916
  4. ISENTRESS [Concomitant]
     Route: 048
     Dates: start: 20100204, end: 20100916
  5. FLUCONAZOLE [Concomitant]
     Dates: start: 20080303, end: 20100916
  6. BACTRIM DS [Concomitant]
     Dates: start: 20061221, end: 20100916
  7. ALPRAZOLAM [Concomitant]
     Dates: start: 20051101, end: 20100916
  8. TESTOSTERONE [Concomitant]
     Dates: start: 20051101, end: 20100916
  9. ZOLPIDEM [Concomitant]
     Dates: start: 20051101, end: 20100916

REACTIONS (1)
  - DEATH [None]
